FAERS Safety Report 18240221 (Version 1)
Quarter: 2020Q3

REPORT INFORMATION
  Report Type: Spontaneous
  Country: US (occurrence: US)
  Receive Date: 20200908
  Receipt Date: 20200908
  Transmission Date: 20201103
  Serious: Yes (Other)
  Sender: FDA-Public Use
  Company Number: US-ADVANZ PHARMA-GSH201903-000596

PATIENT

DRUGS (1)
  1. DYRENIUM [Suspect]
     Active Substance: TRIAMTERENE
     Dosage: UNKNOWN

REACTIONS (1)
  - Hypokalaemia [Unknown]
